FAERS Safety Report 15325101 (Version 1)
Quarter: 2018Q3

REPORT INFORMATION
  Report Type: Spontaneous
  Country: US (occurrence: US)
  Receive Date: 20180822
  Receipt Date: 20180822
  Transmission Date: 20181010
  Serious: Yes (Life-Threatening)
  Sender: FDA-Public Use
  Company Number: None

PATIENT
  Age: 31 Year
  Sex: Male
  Weight: 65 kg

DRUGS (3)
  1. DEXAMETHASONE. [Concomitant]
     Active Substance: DEXAMETHASONE
     Dates: start: 20180821
  2. PALONOSETRON. [Concomitant]
     Active Substance: PALONOSETRON HYDROCHLORIDE
  3. CINVANTI [Suspect]
     Active Substance: APREPITANT
     Indication: VOMITING
     Dosage: ?          OTHER FREQUENCY:ONCE;?
     Route: 040

REACTIONS (4)
  - Wheezing [None]
  - Dyspnoea [None]
  - Eye swelling [None]
  - Pruritus [None]

NARRATIVE: CASE EVENT DATE: 20180821
